FAERS Safety Report 8473316-X (Version None)
Quarter: 2012Q2

REPORT INFORMATION
  Report Type: 
  Country: None (occurrence: None)
  Receive Date: 20120628
  Receipt Date: 20120622
  Transmission Date: 20120825
  Serious: Yes (Other)
  Sender: FDA-Public Use
  Company Number: US-AMGEN-USASP2012038949

PATIENT
  Age: 51 Year
  Sex: Female

DRUGS (2)
  1. ENBREL [Suspect]
     Indication: PSORIATIC ARTHROPATHY
  2. ENBREL [Suspect]
     Indication: RHEUMATOID ARTHRITIS
     Dosage: 50 MG, QWK
     Dates: start: 20111209

REACTIONS (10)
  - FIBROMYALGIA [None]
  - INJECTION SITE SWELLING [None]
  - CONTUSION [None]
  - INJECTION SITE ERYTHEMA [None]
  - INJECTION SITE PRURITUS [None]
  - PLATELET COUNT DECREASED [None]
  - MITRAL VALVE INCOMPETENCE [None]
  - DIABETES MELLITUS [None]
  - CARDIAC MURMUR [None]
  - INJECTION SITE URTICARIA [None]
